FAERS Safety Report 14146467 (Version 9)
Quarter: 2020Q2

REPORT INFORMATION
  Report Type: Spontaneous
  Country: CA (occurrence: CA)
  Receive Date: 20171031
  Receipt Date: 20200601
  Transmission Date: 20200713
  Serious: Yes (Other)
  Sender: FDA-Public Use
  Company Number: CA-PFIZER INC-2017449890

PATIENT
  Age: 65 Year
  Sex: Female

DRUGS (3)
  1. XELJANZ [Suspect]
     Active Substance: TOFACITINIB CITRATE
     Dosage: 5 MG, 2X/DAY
     Route: 048
     Dates: start: 20180501, end: 2019
  2. XELJANZ [Suspect]
     Active Substance: TOFACITINIB CITRATE
     Indication: RHEUMATOID ARTHRITIS
     Dosage: 5 MG, 2X/DAY
     Route: 048
     Dates: start: 20171016, end: 20171023
  3. XELJANZ [Suspect]
     Active Substance: TOFACITINIB CITRATE
     Dosage: 5 MG, 1X/DAY (AT BEDTIME WITHOUT FOOD)
     Route: 048
     Dates: start: 20171028, end: 20171109

REACTIONS (17)
  - Hernia [Recovered/Resolved]
  - Middle insomnia [Recovered/Resolved]
  - Muscle spasms [Not Recovered/Not Resolved]
  - Dry eye [Recovered/Resolved]
  - Dry mouth [Recovered/Resolved]
  - Dry skin [Recovered/Resolved]
  - Weight decreased [Recovered/Resolved]
  - Neuralgia [Recovered/Resolved]
  - Decreased appetite [Recovered/Resolved]
  - Nausea [Recovered/Resolved]
  - Headache [Recovered/Resolved]
  - Palpitations [Recovered/Resolved]
  - Feeling hot [Recovered/Resolved]
  - Breast cancer female [Unknown]
  - Nasal dryness [Recovered/Resolved]
  - Angina pectoris [Recovered/Resolved]
  - Back pain [Recovered/Resolved]

NARRATIVE: CASE EVENT DATE: 201710
